FAERS Safety Report 9689074 (Version 1)
Quarter: 2013Q4

REPORT INFORMATION
  Report Type: Spontaneous
  Country: GB (occurrence: GB)
  Receive Date: 20131114
  Receipt Date: 20131114
  Transmission Date: 20140711
  Serious: Yes (Disabling)
  Sender: FDA-Public Use
  Company Number: GB-ACTAVIS-2013-20768

PATIENT
  Age: 22 Year
  Sex: Female

DRUGS (4)
  1. OXYTETRACYCLINE (UNKNOWN) [Suspect]
     Indication: ACNE
     Dosage: STOPPED 4 MONTHS AGO
     Route: 065
  2. LYMECYCLINE (UNKNOWN) [Suspect]
     Indication: ACNE
     Dosage: STOPPED 4 MONTHS AGO
     Route: 065
  3. ERYTHROMYCIN (UNKNOWN) [Suspect]
     Indication: ACNE
     Dosage: STOPPED 4 MONTHS AGO
     Route: 065
  4. MICROGYNON                         /00022701/ [Concomitant]
     Indication: CONTRACEPTION
     Dosage: TAKEN FOR 5 YEARS
     Route: 065

REACTIONS (3)
  - Interstitial lung disease [Not Recovered/Not Resolved]
  - Bullous lung disease [Unknown]
  - Dyspnoea exertional [Unknown]
